FAERS Safety Report 10132633 (Version 1)
Quarter: 2014Q2

REPORT INFORMATION
  Report Type: Spontaneous
  Country: US (occurrence: US)
  Receive Date: 20140428
  Receipt Date: 20140428
  Transmission Date: 20141212
  Serious: No
  Sender: FDA-Public Use
  Company Number: US-MALLINCKRODT-T201305171

PATIENT
  Age: 65 Year
  Sex: Female

DRUGS (3)
  1. HYDROCODONE/ACETAMINOPHEN [Suspect]
     Indication: BACK PAIN
     Dosage: 10/325 MG, TID
     Route: 048
     Dates: start: 20131204, end: 20131210
  2. THEOPHYLLIN [Concomitant]
     Indication: ASTHMA
     Dosage: UNK
     Route: 048
  3. ALBUTEROL HFA [Concomitant]
     Indication: ASTHMA
     Dosage: UNK
     Route: 065

REACTIONS (4)
  - Abdominal pain upper [Recovered/Resolved]
  - Headache [Recovered/Resolved]
  - Feeling cold [Recovered/Resolved]
  - Vomiting [Recovered/Resolved]
